FAERS Safety Report 4404230-4 (Version None)
Quarter: 2004Q3

REPORT INFORMATION
  Report Type: 
  Country: None (occurrence: None)
  Receive Date: 20040721
  Receipt Date: 20040721
  Transmission Date: 20050211
  Serious: No
  Sender: FDA-Public Use
  Company Number: None

PATIENT
  Age: 74 Year
  Sex: Male
  Weight: 67.6 kg

DRUGS (18)
  1. CEFTRIAXONE [Suspect]
     Indication: SEPSIS
     Dosage: 2 GMIV
     Route: 042
     Dates: start: 20040130, end: 20040225
  2. CELECOXIB [Concomitant]
  3. FUROSEMIDE [Concomitant]
  4. COUMADIN [Concomitant]
  5. HEPARIN [Concomitant]
  6. ACETAMINOPHEN [Concomitant]
  7. MAGNESIUM SULFATE [Concomitant]
  8. METRONIDAZOLE [Concomitant]
  9. LANOXIN [Concomitant]
  10. ATENOLOL [Concomitant]
  11. DOCUSATE NA [Concomitant]
  12. FERROUS SO4 [Concomitant]
  13. FOLIC ACID [Concomitant]
  14. MULTI-VITAMIN [Concomitant]
  15. OMEPRAZOLE [Concomitant]
  16. AMOXICILLIN [Concomitant]
  17. ACETAMINOPHEN AND HYDROCODONE BITARTRATE [Concomitant]
  18. ARTIFICIAL TEARS POLYVINYL ALCOHOL [Concomitant]

REACTIONS (1)
  - BACTERIA STOOL IDENTIFIED [None]
